FAERS Safety Report 6620767-1 (Version None)
Quarter: 2010Q1

REPORT INFORMATION
  Report Type: 
  Country: None (occurrence: None)
  Receive Date: 20100309
  Receipt Date: 20100225
  Transmission Date: 20100710
  Serious: Yes (Other)
  Sender: FDA-Public Use
  Company Number: DE-PFIZER INC-2010024920

PATIENT
  Age: 24 Year
  Sex: Female

DRUGS (1)
  1. ZELDOX [Suspect]
     Indication: PSYCHOTIC DISORDER
     Dosage: 20 MG, 1X/DAY
     Route: 048
     Dates: start: 20080601, end: 20090601

REACTIONS (2)
  - DYSKINESIA [None]
  - JAW DISORDER [None]
